FAERS Safety Report 18670962 (Version 3)
Quarter: 2021Q1

REPORT INFORMATION
  Report Type: Report from Study
  Country: US (occurrence: US)
  Receive Date: 20201228
  Receipt Date: 20210113
  Transmission Date: 20210419
  Serious: Yes (Other)
  Sender: FDA-Public Use
  Company Number: US-EISAI MEDICAL RESEARCH-EC-2020-084487

PATIENT
  Age: 86 Year
  Sex: Male
  Weight: 75 kg

DRUGS (10)
  1. LENVIMA [Suspect]
     Active Substance: LENVATINIB
     Route: 048
     Dates: start: 2020, end: 2020
  2. AMLODIPINE BESYLATE. [Suspect]
     Active Substance: AMLODIPINE BESYLATE
     Indication: PRODUCT USED FOR UNKNOWN INDICATION
     Route: 048
  3. ASPIRIN. [Concomitant]
     Active Substance: ASPIRIN
  4. METOPROLOL SUCCINATE. [Concomitant]
     Active Substance: METOPROLOL SUCCINATE
  5. LISINOPRIL. [Concomitant]
     Active Substance: LISINOPRIL
  6. LEVOTHYROXINE SODIUM. [Concomitant]
     Active Substance: LEVOTHYROXINE SODIUM
  7. LENVIMA [Suspect]
     Active Substance: LENVATINIB
     Indication: THYROID CANCER
     Route: 048
     Dates: start: 20201118, end: 2020
  8. CALCITRIOL. [Concomitant]
     Active Substance: CALCITRIOL
  9. LENVIMA [Suspect]
     Active Substance: LENVATINIB
     Route: 048
     Dates: start: 2020
  10. EZETIMIBE. [Concomitant]
     Active Substance: EZETIMIBE

REACTIONS (12)
  - Oral pain [Unknown]
  - Insomnia [Unknown]
  - Nausea [Unknown]
  - Blood pressure increased [Recovering/Resolving]
  - Myalgia [Unknown]
  - Ageusia [Unknown]
  - Chest pain [Unknown]
  - Fatigue [Unknown]
  - Atrial fibrillation [Unknown]
  - Dry mouth [Unknown]
  - Constipation [Unknown]
  - Weight decreased [Unknown]

NARRATIVE: CASE EVENT DATE: 2020
